FAERS Safety Report 13306906 (Version 1)
Quarter: 2017Q1

REPORT INFORMATION
  Report Type: Spontaneous
  Country: US (occurrence: US)
  Receive Date: 20170308
  Receipt Date: 20170308
  Transmission Date: 20170428
  Serious: No
  Sender: FDA-Public Use
  Company Number: US-AKORN PHARMACEUTICALS-2016AKN00397

PATIENT
  Age: 22 Year
  Sex: Male

DRUGS (3)
  1. MYORISAN [Suspect]
     Active Substance: ISOTRETINOIN
     Indication: ACNE
     Dosage: 40 MG, UNK
     Route: 048
     Dates: start: 20160511, end: 20160513
  2. SIMVASTATIN. [Concomitant]
     Active Substance: SIMVASTATIN
  3. MYORISAN [Suspect]
     Active Substance: ISOTRETINOIN
     Indication: ALOPECIA SCARRING

REACTIONS (3)
  - Face oedema [Recovered/Resolved]
  - Lip swelling [Recovered/Resolved]
  - Product use issue [Recovered/Resolved]

NARRATIVE: CASE EVENT DATE: 20160511
